FAERS Safety Report 9663433 (Version 1)
Quarter: 2013Q4

REPORT INFORMATION
  Report Type: Spontaneous
  Country: US (occurrence: US)
  Receive Date: 20131101
  Receipt Date: 20131101
  Transmission Date: 20140711
  Serious: Yes (Hospitalization, Other)
  Sender: FDA-Public Use
  Company Number: US-ASTRAZENECA-2013SE78792

PATIENT
  Age: 60 Year
  Sex: Female
  Weight: 54.4 kg

DRUGS (6)
  1. TENORMIN [Suspect]
     Indication: CARDIAC DISORDER
     Route: 048
  2. TENORMIN [Suspect]
     Indication: CARDIAC DISORDER
     Route: 048
  3. ARIMIDEX [Suspect]
     Indication: BREAST CANCER
     Route: 048
     Dates: start: 20121228
  4. LANOXIN [Concomitant]
     Indication: CARDIAC DISORDER
     Dosage: 0.25 DAILY
     Route: 048
  5. SYNTHYROID [Concomitant]
     Indication: THYROID DISORDER
     Route: 048
  6. RYTHMOL [Concomitant]
     Indication: CARDIAC DISORDER
     Route: 048

REACTIONS (9)
  - Breast cancer [Not Recovered/Not Resolved]
  - Atrial fibrillation [Not Recovered/Not Resolved]
  - Tachyarrhythmia [Recovering/Resolving]
  - Hot flush [Not Recovered/Not Resolved]
  - Menopause [Recovered/Resolved]
  - Insomnia [Not Recovered/Not Resolved]
  - Feeling abnormal [Recovering/Resolving]
  - Fatigue [Recovered/Resolved]
  - Off label use [Unknown]
